FAERS Safety Report 24311727 (Version 2)
Quarter: 2024Q3

REPORT INFORMATION
  Report Type: Spontaneous
  Country: JP (occurrence: JP)
  Receive Date: 20240912
  Receipt Date: 20240921
  Transmission Date: 20241017
  Serious: Yes (Other)
  Sender: ROCHE
  Company Number: JP-CP_KK-2024JP001452

PATIENT
  Age: 76 Year
  Sex: Male

DRUGS (4)
  1. HERCEPTIN [Suspect]
     Active Substance: TRASTUZUMAB
     Indication: Gastric cancer
     Dosage: (2 SESSIONS, 1 BREAK)
     Route: 065
  2. CAPECITABINE [Suspect]
     Active Substance: CAPECITABINE
     Indication: Gastric cancer
     Dosage: (2 SESSIONS, 1 BREAK)
     Route: 048
     Dates: start: 20240814
  3. CAPECITABINE [Suspect]
     Active Substance: CAPECITABINE
     Dosage: SECOND COURSE
     Route: 048
     Dates: start: 202409
  4. OXALIPLATIN [Suspect]
     Active Substance: OXALIPLATIN
     Indication: Gastric cancer
     Dosage: (2 SESSIONS, 1 BREAK)
     Route: 065

REACTIONS (3)
  - Rectal haemorrhage [Unknown]
  - Diarrhoea [Not Recovered/Not Resolved]
  - Rash [Unknown]
